FAERS Safety Report 10223151 (Version 1)
Quarter: 2014Q2

REPORT INFORMATION
  Report Type: Spontaneous
  Country: JP (occurrence: JP)
  Receive Date: 20140608
  Receipt Date: 20140608
  Transmission Date: 20141212
  Serious: Yes (Other)
  Sender: FDA-Public Use
  Company Number: PHHY2014JP069400

PATIENT
  Sex: Female

DRUGS (2)
  1. NEORAL [Suspect]
     Indication: NEPHROTIC SYNDROME
     Dosage: 100 MG, DAILY
     Route: 048
  2. NEORAL [Suspect]
     Dosage: 50 MG, DAILY
     Route: 048

REACTIONS (1)
  - Cerebrovascular accident [Unknown]
